FAERS Safety Report 12278158 (Version 1)
Quarter: 2016Q2

REPORT INFORMATION
  Report Type: Spontaneous
  Country: US (occurrence: US)
  Receive Date: 20160418
  Receipt Date: 20160418
  Transmission Date: 20160815
  Serious: No
  Sender: FDA-Public Use
  Company Number: ADR-2015-00283

PATIENT
  Age: 34 Year
  Sex: Male

DRUGS (2)
  1. SALINE [Suspect]
     Active Substance: SODIUM CHLORIDE
     Dosage: 96.96
     Dates: start: 20150429
  2. LIORESAL [Suspect]
     Active Substance: BACLOFEN
     Dosage: 120 MCG/DAY

REACTIONS (4)
  - Vision blurred [Recovered/Resolved]
  - No therapeutic response [Recovered/Resolved]
  - Headache [Recovered/Resolved]
  - Migraine [Recovered/Resolved]

NARRATIVE: CASE EVENT DATE: 20150201
